FAERS Safety Report 16702978 (Version 1)
Quarter: 2019Q3

REPORT INFORMATION
  Report Type: Spontaneous
  Country: US (occurrence: US)
  Receive Date: 20190814
  Receipt Date: 20190814
  Transmission Date: 20191004
  Serious: Yes (Other)
  Sender: FDA-Public Use
  Company Number: US-ASTRAZENECA-2019SF13728

PATIENT
  Age: 25993 Day
  Sex: Female
  Weight: 79.8 kg

DRUGS (4)
  1. SYMBICORT [Suspect]
     Active Substance: BUDESONIDE\FORMOTEROL FUMARATE DIHYDRATE
     Indication: ASTHMA
     Dosage: SYMBICORT 160/4.5 MCG FOR ASTHMA, TWO INHALATIONS, TWICE DAILY, WITH A START DATE OF ABOUT 9 YEAR...
     Route: 055
  2. SYMBICORT [Suspect]
     Active Substance: BUDESONIDE\FORMOTEROL FUMARATE DIHYDRATE
     Indication: ASTHMA
     Dosage: SYMBICORT ONE INHALATION, TWICE DAILY, WITH A START DATE OF SEVERAL YEARS AGO.
     Route: 055
  3. MOBIC [Concomitant]
     Active Substance: MELOXICAM
     Indication: INFLAMMATION
     Route: 048
     Dates: start: 2019
  4. MOBIC [Concomitant]
     Active Substance: MELOXICAM
     Indication: INFLAMMATION
     Dosage: FOUR OR 5 MONTHS AGO, 7.5 MG TAKE TWO DAILY
     Route: 048
     Dates: start: 2019

REACTIONS (7)
  - Medication error [Not Recovered/Not Resolved]
  - Hip fracture [Not Recovered/Not Resolved]
  - Intentional device misuse [Unknown]
  - Intentional product misuse [Not Recovered/Not Resolved]
  - Device issue [Unknown]
  - Osteoarthritis [Not Recovered/Not Resolved]
  - Feeling jittery [Not Recovered/Not Resolved]

NARRATIVE: CASE EVENT DATE: 201701
